FAERS Safety Report 20770190 (Version 1)
Quarter: 2022Q2

REPORT INFORMATION
  Report Type: Report from Study
  Country: RU (occurrence: RU)
  Receive Date: 20220429
  Receipt Date: 20220429
  Transmission Date: 20220720
  Serious: Yes (Other)
  Sender: FDA-Public Use
  Company Number: RU-NOVARTISPH-NVSC2022RU097018

PATIENT
  Age: 54 Year
  Sex: Female

DRUGS (9)
  1. RIBOCICLIB [Suspect]
     Active Substance: RIBOCICLIB
     Indication: Breast cancer
     Dosage: UNK
     Route: 065
     Dates: start: 20200508
  2. EVEROLIMUS [Suspect]
     Active Substance: EVEROLIMUS
     Indication: Breast cancer
     Dosage: UNK
     Route: 065
     Dates: start: 202105
  3. ALPELISIB [Suspect]
     Active Substance: ALPELISIB
     Indication: Breast cancer
     Dosage: 300 MG, QD
     Route: 065
     Dates: start: 20220319
  4. FULVESTRANT [Suspect]
     Active Substance: FULVESTRANT
     Indication: Breast cancer
     Dosage: 500 MG, QMO
     Route: 030
     Dates: start: 20200508
  5. METFORMIN [Concomitant]
     Active Substance: METFORMIN HYDROCHLORIDE
     Indication: Product used for unknown indication
     Dosage: 2000 MG (AT BEDTIME)
     Route: 065
  6. LORATADINE [Concomitant]
     Active Substance: LORATADINE
     Indication: Product used for unknown indication
     Dosage: UNK
     Route: 065
  7. CETIRIZINE [Concomitant]
     Active Substance: CETIRIZINE HYDROCHLORIDE
     Indication: Product used for unknown indication
     Dosage: UNK
     Route: 065
  8. EBASTINE [Concomitant]
     Active Substance: EBASTINE
     Indication: Product used for unknown indication
     Dosage: UNK
     Route: 065
  9. EXEMESTANE [Concomitant]
     Active Substance: EXEMESTANE
     Indication: Product used for unknown indication
     Dosage: UNK
     Route: 065
     Dates: start: 202105

REACTIONS (6)
  - Breast cancer [Unknown]
  - Malignant neoplasm progression [Unknown]
  - Metastases to pleura [Unknown]
  - Pleural effusion [Unknown]
  - Rash [Recovered/Resolved]
  - Blood glucose abnormal [Unknown]

NARRATIVE: CASE EVENT DATE: 20210401
